FAERS Safety Report 8394962-8 (Version None)
Quarter: 2012Q2

REPORT INFORMATION
  Report Type: 
  Country: None (occurrence: None)
  Receive Date: 20120530
  Receipt Date: 20120125
  Transmission Date: 20120825
  Serious: Yes (Hospitalization)
  Sender: FDA-Public Use
  Company Number: US-GLAXOSMITHKLINE-A0963191A

PATIENT
  Age: 41 Year
  Sex: Female

DRUGS (5)
  1. LASIX [Concomitant]
  2. BARACLUDE [Concomitant]
  3. FLOLAN [Suspect]
     Dosage: 64NGKM UNKNOWN
     Route: 065
     Dates: start: 20100113
  4. KLOR-CON [Concomitant]
  5. URSODIOL [Concomitant]

REACTIONS (1)
  - GASTRIC HAEMORRHAGE [None]
